FAERS Safety Report 7929966-X (Version None)
Quarter: 2011Q4

REPORT INFORMATION
  Report Type: 
  Country: None (occurrence: None)
  Receive Date: 20111121
  Receipt Date: 20111115
  Transmission Date: 20120403
  Serious: Yes (Hospitalization, Other)
  Sender: FDA-Public Use
  Company Number: FR-ABBOTT-11P-056-0733684-00

PATIENT
  Sex: Female
  Weight: 75 kg

DRUGS (5)
  1. HUMIRA [Suspect]
     Indication: ANKYLOSING SPONDYLITIS
     Dates: start: 20100121
  2. HUMIRA [Suspect]
     Dates: start: 20100426, end: 20100801
  3. HUMIRA [Suspect]
     Dosage: DOSAGE DECREASED
     Dates: start: 20100412
  4. ACETAMINOPHEN [Concomitant]
     Indication: PRODUCT USED FOR UNKNOWN INDICATION
     Route: 048
  5. INDOMETHACIN [Concomitant]
     Indication: ANKYLOSING SPONDYLITIS

REACTIONS (11)
  - DEPRESSION [None]
  - CARPAL TUNNEL SYNDROME [None]
  - THYROID NEOPLASM [None]
  - THYROID CYST [None]
  - MUSCULOSKELETAL STIFFNESS [None]
  - CHEST DISCOMFORT [None]
  - ANXIETY [None]
  - WEIGHT INCREASED [None]
  - ASTHENIA [None]
  - BRONCHITIS [None]
  - PAIN [None]
